FAERS Safety Report 6915804-0 (Version None)
Quarter: 2010Q3

REPORT INFORMATION
  Report Type: 
  Country: None (occurrence: None)
  Receive Date: 20100810
  Receipt Date: 20100407
  Transmission Date: 20110219
  Serious: No
  Sender: FDA-Public Use
  Company Number: A0854300A

PATIENT
  Age: 76 Year
  Sex: Female

DRUGS (1)
  1. PAXIL [Suspect]
     Indication: PRODUCT USED FOR UNKNOWN INDICATION
     Route: 065

REACTIONS (3)
  - FEELING JITTERY [None]
  - MALAISE [None]
  - NAUSEA [None]
